FAERS Safety Report 10567776 (Version 1)
Quarter: 2014Q4

REPORT INFORMATION
  Report Type: Spontaneous
  Country: US (occurrence: None)
  Receive Date: 20141105
  Receipt Date: 20141105
  Transmission Date: 20150529
  Serious: No
  Sender: FDA-Public Use
  Company Number: None

PATIENT
  Age: 71 Year
  Sex: Female

DRUGS (1)
  1. GENGRAF [Suspect]
     Active Substance: CYCLOSPORINE
     Indication: TRANSPLANT
     Dosage: 75MG IN AM 50MG IN PM, DAILY, BY MOUTH
     Route: 048
     Dates: start: 201201, end: 201410

REACTIONS (1)
  - Skin cancer [None]

NARRATIVE: CASE EVENT DATE: 201410
